FAERS Safety Report 21391828 (Version 1)
Quarter: 2022Q3

REPORT INFORMATION
  Report Type: Spontaneous
  Country: FR (occurrence: FR)
  Receive Date: 20220929
  Receipt Date: 20220929
  Transmission Date: 20221026
  Serious: Yes (Other)
  Sender: FDA-Public Use
  Company Number: None

PATIENT
  Age: 71 Year
  Sex: Female
  Weight: 67 kg

DRUGS (11)
  1. PROPOFOL [Suspect]
     Active Substance: PROPOFOL
     Indication: General anaesthesia
     Dosage: INJECTION
     Route: 042
     Dates: start: 20220613, end: 20220613
  2. SEVOFLURANE [Suspect]
     Active Substance: SEVOFLURANE
     Indication: General anaesthesia
     Dosage: INJECTION
     Route: 042
     Dates: start: 20220613, end: 20220613
  3. ACETAMINOPHEN [Suspect]
     Active Substance: ACETAMINOPHEN
     Indication: Postoperative analgesia
     Dosage: INJECTION
     Route: 042
     Dates: start: 20220613, end: 20220613
  4. KETOPROFEN [Suspect]
     Active Substance: KETOPROFEN
     Indication: Postoperative analgesia
     Dosage: STRENGTH: 100 MG, IN VIAL, INJECTION
     Route: 042
     Dates: start: 20220613, end: 20220613
  5. XYLOCAINE [Suspect]
     Active Substance: LIDOCAINE HYDROCHLORIDE
     Indication: Local anaesthesia
     Dosage: INJECTION
     Route: 042
     Dates: start: 20220613, end: 20220613
  6. NEFOPAM HYDROCHLORIDE [Suspect]
     Active Substance: NEFOPAM HYDROCHLORIDE
     Indication: Postoperative analgesia
     Dosage: INJECTION
     Route: 042
     Dates: start: 20220613, end: 20220613
  7. EPHEDRINE HYDROCHLORIDE [Suspect]
     Active Substance: EPHEDRINE HYDROCHLORIDE
     Indication: Product used for unknown indication
     Dosage: INJECTION
     Route: 042
     Dates: start: 20220613, end: 20220613
  8. KETAMINE HYDROCHLORIDE [Suspect]
     Active Substance: KETAMINE HYDROCHLORIDE
     Indication: General anaesthesia
     Dosage: INJECTION
     Route: 042
     Dates: start: 20220613, end: 20220613
  9. PERFALGAN [Suspect]
     Active Substance: ACETAMINOPHEN
     Indication: Postoperative analgesia
     Dosage: INJECTION
     Route: 042
     Dates: start: 20220613, end: 20220613
  10. ALFENTANIL HYDROCHLORIDE [Suspect]
     Active Substance: ALFENTANIL HYDROCHLORIDE
     Indication: General anaesthesia
     Dosage: INJECTION
     Route: 042
     Dates: start: 20220613, end: 20220613
  11. PHLOROGLUCINOL [Suspect]
     Active Substance: PHLOROGLUCINOL
     Indication: Prophylaxis of nausea and vomiting
     Dosage: INJECTION
     Route: 042
     Dates: start: 20220613, end: 20220613

REACTIONS (1)
  - Arrhythmia [Not Recovered/Not Resolved]

NARRATIVE: CASE EVENT DATE: 20220613
